FAERS Safety Report 5762818-2 (Version None)
Quarter: 2008Q2

REPORT INFORMATION
  Report Type: 
  Country: None (occurrence: None)
  Receive Date: 20080609
  Receipt Date: 20080529
  Transmission Date: 20081010
  Serious: Yes (Other)
  Sender: FDA-Public Use
  Company Number: KR-AVENTIS-200815059GDDC

PATIENT
  Age: 74 Year
  Sex: Male
  Weight: 61 kg

DRUGS (1)
  1. LANTUS [Suspect]
     Indication: DIABETES MELLITUS
     Route: 058
     Dates: start: 20070815

REACTIONS (2)
  - CHEST DISCOMFORT [None]
  - HYPOGLYCAEMIA [None]
